FAERS Safety Report 5606625-X (Version None)
Quarter: 2008Q1

REPORT INFORMATION
  Report Type: 
  Country: None (occurrence: None)
  Receive Date: 20080129
  Receipt Date: 20080124
  Transmission Date: 20080703
  Serious: Yes (Hospitalization)
  Sender: FDA-Public Use
  Company Number: JP-AVENTIS-200810085JP

PATIENT
  Age: 70 Year
  Sex: Male

DRUGS (1)
  1. TAXOTERE [Suspect]

REACTIONS (1)
  - CARDIAC FAILURE [None]
